FAERS Safety Report 5414215-7 (Version None)
Quarter: 2007Q3

REPORT INFORMATION
  Report Type: 
  Country: None (occurrence: None)
  Receive Date: 20070814
  Receipt Date: 20070802
  Transmission Date: 20080115
  Serious: Yes (Other)
  Sender: FDA-Public Use
  Company Number: FR-PFIZER INC-2007065383

PATIENT
  Sex: Female

DRUGS (1)
  1. CHAMPIX [Suspect]
     Indication: SMOKING CESSATION THERAPY
     Dates: start: 20070710, end: 20070101

REACTIONS (4)
  - DEPRESSION [None]
  - INSOMNIA [None]
  - LACRIMATION INCREASED [None]
  - NIGHTMARE [None]
